FAERS Safety Report 8535813-8 (Version None)
Quarter: 2012Q3

REPORT INFORMATION
  Report Type: 
  Country: None (occurrence: None)
  Receive Date: 20120725
  Receipt Date: 20120717
  Transmission Date: 20120928
  Serious: Yes (Disabling, Other)
  Sender: FDA-Public Use
  Company Number: AU-009507513-2012SP012576

PATIENT

DRUGS (2)
  1. RIBAVIRIN (+) PEGINTERFERON ALFA-2B [Suspect]
     Indication: HEPATITIS C
     Dosage: UNK UNK, UNKNOWN
     Dates: start: 20120127
  2. VICTRELIS [Suspect]
     Dosage: UNK UNK, UNKNOWN
     Dates: start: 20120326

REACTIONS (1)
  - COGNITIVE DISORDER [None]
